FAERS Safety Report 23626081 (Version 2)
Quarter: 2024Q2

REPORT INFORMATION
  Report Type: Spontaneous
  Country: DE (occurrence: DE)
  Receive Date: 20240313
  Receipt Date: 20240509
  Transmission Date: 20240715
  Serious: Yes (Life-Threatening, Hospitalization, Disabling, Other)
  Sender: FDA-Public Use
  Company Number: DE-BRISTOL-MYERS SQUIBB COMPANY-2024-014465

PATIENT
  Age: 68 Year
  Sex: Female
  Weight: 52.5 kg

DRUGS (13)
  1. EZETIMIBE [Suspect]
     Active Substance: EZETIMIBE
     Indication: Product used for unknown indication
     Dosage: UNK
     Route: 065
  2. ELIQUIS [Suspect]
     Active Substance: APIXABAN
     Indication: Atrial fibrillation
     Dosage: 5 MILLIGRAM
     Route: 048
     Dates: start: 20170203, end: 20231026
  3. ALLOPURINOL [Concomitant]
     Active Substance: ALLOPURINOL
     Indication: Product used for unknown indication
     Dosage: UNK
     Route: 065
  4. JARDIANCE [Concomitant]
     Active Substance: EMPAGLIFLOZIN
     Indication: Product used for unknown indication
     Dosage: UNK
     Route: 065
  5. FELODIPINE [Concomitant]
     Active Substance: FELODIPINE
     Indication: Product used for unknown indication
     Dosage: 5 MILLIGRAM, ONCE A DAY
     Route: 065
  6. SPIRIVA [Concomitant]
     Active Substance: TIOTROPIUM BROMIDE MONOHYDRATE
     Indication: Product used for unknown indication
     Dosage: 18 MICROGRAM (18 MICROGRAM DOSING AEROSOL DOSE: 2 PUFFS)
     Route: 065
  7. ALENDRONIC ACID [Concomitant]
     Active Substance: ALENDRONIC ACID
     Indication: Product used for unknown indication
     Dosage: 1 MILLIGRAM, EVERY WEEK
     Route: 065
  8. FLUTICASONE PROPIONATE\SALMETEROL XINAFOATE [Concomitant]
     Active Substance: FLUTICASONE PROPIONATE\SALMETEROL XINAFOATE
     Indication: Product used for unknown indication
     Dosage: UNK (50/500 MICROGRAM DOSING AEROSOL DOSE: 1 PUFF)
     Route: 065
  9. ALBUTEROL [Concomitant]
     Active Substance: ALBUTEROL
     Indication: Product used for unknown indication
     Dosage: UNK, AS NECESSARY (DOSING AEROSOL, AS NEEDED)
     Route: 065
  10. VITAMIN D3 [Concomitant]
     Active Substance: CHOLECALCIFEROL
     Indication: Product used for unknown indication
     Dosage: 100 INTERNATIONAL UNIT
     Route: 065
  11. BISOPROLOL [Concomitant]
     Active Substance: BISOPROLOL\BISOPROLOL FUMARATE
     Indication: Product used for unknown indication
     Dosage: 2.5 MILLIGRAM
     Route: 065
  12. TORSEMIDE [Concomitant]
     Active Substance: TORSEMIDE
     Indication: Product used for unknown indication
     Dosage: 5 MILLIGRAM, ONCE A DAY
     Route: 065
  13. EZETIMIBE\SIMVASTATIN [Concomitant]
     Active Substance: EZETIMIBE\SIMVASTATIN
     Indication: Product used for unknown indication
     Dosage: UNK, ONCE A DAY (DOSE: 10/40 MG)
     Route: 065

REACTIONS (14)
  - Pulmonary embolism [Recovered/Resolved with Sequelae]
  - Tricuspid valve incompetence [Unknown]
  - Right ventricular enlargement [Unknown]
  - Right atrial enlargement [Unknown]
  - Skin disorder [Unknown]
  - Osteoporosis [Unknown]
  - Mitral valve incompetence [Unknown]
  - Hypertensive heart disease [Unknown]
  - Granuloma annulare [Unknown]
  - Renal impairment [Unknown]
  - Cardiopulmonary failure [Unknown]
  - Coronary artery disease [Unknown]
  - Pulmonary hypertension [Recovering/Resolving]
  - Liver disorder [Unknown]

NARRATIVE: CASE EVENT DATE: 20170201
